FAERS Safety Report 20390164 (Version 1)
Quarter: 2022Q1

REPORT INFORMATION
  Report Type: Spontaneous
  Country: US (occurrence: US)
  Receive Date: 20220128
  Receipt Date: 20220128
  Transmission Date: 20220423
  Serious: No
  Sender: FDA-Public Use
  Company Number: US-AUROBINDO-AUR-APL-2021-047520

PATIENT
  Age: 38 Year
  Sex: Female
  Weight: 48.073 kg

DRUGS (1)
  1. ECONTRA ONE-STEP [Suspect]
     Active Substance: LEVONORGESTREL
     Indication: Product used for unknown indication
     Dosage: AROUND IN THE MORNING I.E., BEFORE 12^O
     Route: 048
     Dates: start: 20211103, end: 20211103

REACTIONS (3)
  - Nausea [Not Recovered/Not Resolved]
  - Menstrual disorder [Not Recovered/Not Resolved]
  - Muscle spasms [Not Recovered/Not Resolved]
